FAERS Safety Report 21360422 (Version 1)
Quarter: 2022Q3

REPORT INFORMATION
  Report Type: Spontaneous
  Country: US (occurrence: None)
  Receive Date: 20220921
  Receipt Date: 20220921
  Transmission Date: 20221026
  Serious: Yes (Hospitalization)
  Sender: FDA-Public Use
  Company Number: None

PATIENT
  Sex: Female
  Weight: 44.6 kg

DRUGS (3)
  1. CYCLOPHOSPHAMIDE [Suspect]
     Active Substance: CYCLOPHOSPHAMIDE
     Dates: end: 20220907
  2. DACTINOMYCIN [Suspect]
     Active Substance: DACTINOMYCIN
     Dates: end: 20220907
  3. VINCRISTINE SULFATE [Suspect]
     Active Substance: VINCRISTINE SULFATE
     Dates: end: 20220907

REACTIONS (10)
  - Peripheral sensory neuropathy [None]
  - Peripheral motor neuropathy [None]
  - Pain in jaw [None]
  - Gait disturbance [None]
  - Pain [None]
  - Asthenia [None]
  - Dysphonia [None]
  - Dysphagia [None]
  - Respiratory distress [None]
  - Vocal cord paralysis [None]

NARRATIVE: CASE EVENT DATE: 20220912
